FAERS Safety Report 4629351-2 (Version None)
Quarter: 2005Q2

REPORT INFORMATION
  Report Type: 
  Country: None (occurrence: None)
  Receive Date: 20050404
  Receipt Date: 20050318
  Transmission Date: 20051028
  Serious: Yes (Other)
  Sender: FDA-Public Use
  Company Number: WAES 0503BRA00052

PATIENT
  Age: 88 Year
  Sex: Female

DRUGS (8)
  1. PRIMAXIN [Suspect]
     Indication: PNEUMONIA
     Dosage: 500 MG/Q12H IV
     Route: 042
     Dates: start: 20050122
  2. (FORM) BLINDED THERAPY [Suspect]
     Indication: PNEUMONIA
     Dosage: IV
     Route: 042
     Dates: start: 20050117, end: 20050121
  3. AZTREONAM [Concomitant]
  4. CEFEPIME [Concomitant]
  5. CIPROFLOXACIN [Concomitant]
  6. HYDROCORTISONE [Concomitant]
  7. RANITIDINE [Concomitant]
  8. VANCOMYCIN [Concomitant]

REACTIONS (6)
  - CHEST X-RAY ABNORMAL [None]
  - FIBRIN D DIMER INCREASED [None]
  - HYPOGLYCAEMIA [None]
  - MYOCLONUS [None]
  - NOSOCOMIAL INFECTION [None]
  - WHITE BLOOD CELL COUNT INCREASED [None]
